FAERS Safety Report 7180901-4 (Version None)
Quarter: 2010Q4

REPORT INFORMATION
  Report Type: 
  Country: None (occurrence: None)
  Receive Date: 20101221
  Receipt Date: 20100414
  Transmission Date: 20110411
  Serious: No
  Sender: FDA-Public Use
  Company Number: US-AMGEN-KDL406236

PATIENT

DRUGS (2)
  1. ENBREL [Suspect]
     Indication: RHEUMATOID ARTHRITIS
     Dosage: 50 MG, QWK
     Route: 058
     Dates: start: 20050101
  2. HYDROXYCHLOROQUINE SULFATE [Concomitant]
     Dosage: UNK UNK, UNK

REACTIONS (5)
  - BURSITIS [None]
  - MORTON'S NEUROMA [None]
  - MUSCULOSKELETAL DISCOMFORT [None]
  - RHEUMATOID ARTHRITIS [None]
  - TINEA PEDIS [None]
